FAERS Safety Report 9646612 (Version 2)
Quarter: 2013Q4

REPORT INFORMATION
  Report Type: Report from Study
  Country: US (occurrence: US)
  Receive Date: 20131026
  Receipt Date: 20131105
  Transmission Date: 20140711
  Serious: Yes (Death)
  Sender: FDA-Public Use
  Company Number: US-ROCHE-1295034

PATIENT
  Age: 40 Year
  Sex: Male
  Weight: 53.12 kg

DRUGS (5)
  1. XELODA [Suspect]
     Indication: OESOPHAGEAL CARCINOMA
     Route: 048
     Dates: start: 20130922
  2. ESOMEPRAZOLE [Concomitant]
     Route: 065
  3. REGLAN [Concomitant]
     Route: 065
  4. PHENERGAN [Concomitant]
     Route: 065
  5. MORPHINE [Concomitant]
     Route: 065

REACTIONS (1)
  - Oesophageal adenocarcinoma [Fatal]
